FAERS Safety Report 18996083 (Version 1)
Quarter: 2021Q1

REPORT INFORMATION
  Report Type: Spontaneous
  Country: US (occurrence: US)
  Receive Date: 20210311
  Receipt Date: 20210311
  Transmission Date: 20210420
  Serious: Yes (Hospitalization)
  Sender: FDA-Public Use
  Company Number: US-AUROBINDO-AUR-APL-2021-009471

PATIENT
  Sex: Male

DRUGS (4)
  1. ZEVALIN [Suspect]
     Active Substance: IBRITUMOMAB TIUXETAN
     Indication: NON-HODGKIN^S LYMPHOMA
     Dosage: 1 UNK, ONCE A DAY
     Route: 042
  2. YTTRIUM (90 Y) [Suspect]
     Active Substance: YTTRIUM CHLORIDE Y-90
     Indication: NON-HODGKIN^S LYMPHOMA
     Dosage: 1 UNK, ONCE A DAY
     Route: 042
  3. INDIUM (111 IN) [Suspect]
     Active Substance: INDIUM IN-111
     Indication: NON-HODGKIN^S LYMPHOMA
     Dosage: 1 UNK, ONCE A DAY
     Route: 042
  4. RITUXIMAB. [Suspect]
     Active Substance: RITUXIMAB
     Indication: NON-HODGKIN^S LYMPHOMA
     Dosage: 250 MILLIGRAM/SQ. METER, ONCE A DAY
     Route: 042

REACTIONS (1)
  - Hospitalisation [Unknown]
